FAERS Safety Report 6838976-5 (Version None)
Quarter: 2010Q3

REPORT INFORMATION
  Report Type: 
  Country: None (occurrence: None)
  Receive Date: 20100713
  Receipt Date: 20070918
  Transmission Date: 20110219
  Serious: Yes (Disabling, Other)
  Sender: FDA-Public Use
  Company Number: US-PFIZER INC-2007034984

PATIENT
  Sex: Female
  Weight: 65.9 kg

DRUGS (10)
  1. CHANTIX [Suspect]
     Indication: SMOKING CESSATION THERAPY
     Dates: start: 20070424, end: 20070427
  2. TOPROL-XL [Concomitant]
  3. LORAZEPAM [Concomitant]
  4. DICLOFENAC SODIUM [Concomitant]
  5. MORPHINE SULFATE [Concomitant]
  6. ISOSORBIDE MONONITRATE [Concomitant]
  7. FUROSEMIDE [Concomitant]
  8. PROMETHAZINE [Concomitant]
  9. ACETYLSALICYLIC ACID [Concomitant]
  10. STOOL SOFTENER [Concomitant]

REACTIONS (3)
  - VISION BLURRED [None]
  - VISUAL ACUITY REDUCED [None]
  - VISUAL IMPAIRMENT [None]
